FAERS Safety Report 5933052-8 (Version None)
Quarter: 2008Q4

REPORT INFORMATION
  Report Type: 
  Country: None (occurrence: None)
  Receive Date: 20081028
  Receipt Date: 20081015
  Transmission Date: 20090506
  Serious: Yes (Hospitalization)
  Sender: FDA-Public Use
  Company Number: US-ELI_LILLY_AND_COMPANY-US200810003916

PATIENT
  Sex: Female

DRUGS (4)
  1. FORTEO [Suspect]
     Dates: start: 20080101
  2. LIPITOR [Concomitant]
  3. ARICEPT [Concomitant]
  4. NAMENDA [Concomitant]

REACTIONS (2)
  - CARDIAC FIBRILLATION [None]
  - HEART RATE INCREASED [None]
